FAERS Safety Report 8453790-5 (Version None)
Quarter: 2012Q2

REPORT INFORMATION
  Report Type: 
  Country: None (occurrence: None)
  Receive Date: 20120620
  Receipt Date: 20120614
  Transmission Date: 20120825
  Serious: Yes (Life-Threatening, Hospitalization)
  Sender: FDA-Public Use
  Company Number: CO-ELI_LILLY_AND_COMPANY-CO201205009531

PATIENT
  Age: 66 Year
  Sex: Male

DRUGS (10)
  1. ENALAPRIL MALEATE [Concomitant]
  2. CALCIUM WITH VITAMIN D [Concomitant]
  3. LEVEMIR [Concomitant]
  4. METOPROLOL [Concomitant]
  5. BYETTA [Suspect]
     Dosage: 5 UG, BID
     Dates: start: 20120602
  6. ATORVASTATIN [Concomitant]
  7. CLOPIDOGREL [Concomitant]
  8. NOVORAPID [Concomitant]
  9. BYETTA [Suspect]
     Indication: TYPE 2 DIABETES MELLITUS
     Dosage: 10 UG, UNK
     Route: 058
     Dates: start: 20120301
  10. RANITIDINE [Concomitant]

REACTIONS (4)
  - CARDIO-RESPIRATORY ARREST [None]
  - NODULE [None]
  - ADVERSE DRUG REACTION [None]
  - OFF LABEL USE [None]
